FAERS Safety Report 18403365 (Version 1)
Quarter: 2020Q4

REPORT INFORMATION
  Report Type: Spontaneous
  Country: US (occurrence: US)
  Receive Date: 20201020
  Receipt Date: 20201020
  Transmission Date: 20210114
  Serious: Yes (Other)
  Sender: FDA-Public Use
  Company Number: US-STRIDES ARCOLAB LIMITED-2020SP009314

PATIENT
  Age: 41 Year
  Sex: Female

DRUGS (3)
  1. ABATACEPT [Suspect]
     Active Substance: ABATACEPT
     Indication: IMMUNOMODULATORY THERAPY
     Dosage: 750 MILLIGRAM, MONTHLY
     Route: 065
  2. FINGOLIMOD. [Suspect]
     Active Substance: FINGOLIMOD
     Indication: IMMUNOMODULATORY THERAPY
     Dosage: 0.5 MILLIGRAM DAILY
     Route: 065
  3. METHOTREXATE. [Suspect]
     Active Substance: METHOTREXATE
     Indication: IMMUNOMODULATORY THERAPY
     Dosage: 12.5 MILLIGRAM, WEEKLY
     Route: 065

REACTIONS (3)
  - Skin lesion [Recovered/Resolved]
  - Papule [Recovered/Resolved]
  - Molluscum contagiosum [Recovered/Resolved]
